FAERS Safety Report 5056444-0 (Version None)
Quarter: 2006Q3

REPORT INFORMATION
  Report Type: 
  Country: None (occurrence: None)
  Receive Date: 20060720
  Receipt Date: 20060713
  Transmission Date: 20061208
  Serious: Yes (Other)
  Sender: FDA-Public Use
  Company Number: US-BRISTOL-MYERS SQUIBB COMPANY-13441639

PATIENT
  Age: 39 Year
  Sex: Female
  Weight: 116 kg

DRUGS (6)
  1. DEFINITY [Suspect]
     Indication: STRESS ECHOCARDIOGRAM
     Route: 042
     Dates: start: 20060712, end: 20060712
  2. BARIUM SULFATE [Suspect]
     Indication: GASTROINTESTINAL DISORDER
  3. CATAPRES-TTS-1 [Concomitant]
  4. SYNTHROID [Concomitant]
  5. ASPIRIN [Concomitant]
  6. ALTACE [Concomitant]

REACTIONS (3)
  - BACK PAIN [None]
  - HYPOAESTHESIA FACIAL [None]
  - MUSCULAR WEAKNESS [None]
